FAERS Safety Report 9128535 (Version 4)
Quarter: 2013Q2

REPORT INFORMATION
  Report Type: Spontaneous
  Country: JP (occurrence: JP)
  Receive Date: 20130125
  Receipt Date: 20130524
  Transmission Date: 20140414
  Serious: Yes (Death, Hospitalization)
  Sender: FDA-Public Use
  Company Number: JP-JNJFOC-20130110568

PATIENT
  Age: 74 Year
  Sex: Female
  Weight: 45 kg

DRUGS (24)
  1. SIMPONI [Suspect]
     Indication: RHEUMATOID ARTHRITIS
     Route: 058
     Dates: start: 20120216, end: 20120216
  2. SIMPONI [Suspect]
     Indication: RHEUMATOID ARTHRITIS
     Route: 058
     Dates: start: 20120118, end: 20120118
  3. SIMPONI [Suspect]
     Indication: RHEUMATOID ARTHRITIS
     Route: 058
     Dates: start: 20120315, end: 20120315
  4. SIMPONI [Suspect]
     Indication: RHEUMATOID ARTHRITIS
     Route: 058
     Dates: start: 20120412, end: 20120412
  5. SIMPONI [Suspect]
     Indication: RHEUMATOID ARTHRITIS
     Route: 058
     Dates: start: 20120510, end: 20120510
  6. SIMPONI [Suspect]
     Indication: RHEUMATOID ARTHRITIS
     Route: 058
     Dates: start: 20120607, end: 20121120
  7. SIMPONI [Suspect]
     Indication: RHEUMATOID ARTHRITIS
     Route: 058
     Dates: start: 20121224, end: 20121224
  8. SIMPONI [Suspect]
     Indication: RHEUMATOID ARTHRITIS
     Route: 058
     Dates: start: 20111221, end: 20111221
  9. SIMPONI [Suspect]
     Indication: RHEUMATOID ARTHRITIS
     Route: 058
     Dates: start: 20111020, end: 20111020
  10. RHEUMATREX [Concomitant]
     Indication: RHEUMATOID ARTHRITIS
     Route: 065
  11. METOLATE [Concomitant]
     Indication: RHEUMATOID ARTHRITIS
     Route: 048
     Dates: start: 20040804
  12. FOLIAMIN [Concomitant]
     Indication: RHEUMATOID ARTHRITIS
     Route: 048
     Dates: start: 20040804
  13. ACTONEL [Concomitant]
     Indication: OSTEOPOROSIS POSTMENOPAUSAL
     Route: 048
     Dates: start: 20040804
  14. PLATIBIT [Concomitant]
     Indication: OSTEOPOROSIS POSTMENOPAUSAL
     Dosage: DOSE MENIONED AS 1.0 DF
     Route: 048
     Dates: start: 20040804
  15. ETODOLAC [Concomitant]
     Indication: RHEUMATOID ARTHRITIS
     Route: 048
     Dates: start: 20040804
  16. LANIZAC [Concomitant]
     Indication: GASTRITIS
     Route: 048
     Dates: start: 20040804
  17. PREDNISOLONE [Concomitant]
     Indication: RHEUMATOID ARTHRITIS
     Route: 048
     Dates: start: 20040804
  18. MAGMITT [Concomitant]
     Indication: CONSTIPATION
     Route: 048
     Dates: start: 20111205
  19. AMLODIN [Concomitant]
     Indication: HYPERTENSION
     Route: 048
  20. JANUVIA [Concomitant]
     Indication: DIABETES MELLITUS
     Route: 048
  21. ARTIST [Concomitant]
     Indication: HYPERTENSION
     Route: 048
  22. MYSLEE [Concomitant]
     Indication: INSOMNIA
     Route: 048
  23. ECARD [Concomitant]
     Indication: HYPERTENSION
     Route: 048
  24. BLOPRESS [Concomitant]
     Indication: HYPERTENSION
     Route: 048

REACTIONS (4)
  - Pulmonary embolism [Fatal]
  - Pulmonary infarction [Unknown]
  - Femur fracture [Not Recovered/Not Resolved]
  - Fall [Not Recovered/Not Resolved]
